FAERS Safety Report 18057337 (Version 1)
Quarter: 2020Q3

REPORT INFORMATION
  Report Type: Spontaneous
  Country: AU (occurrence: AU)
  Receive Date: 20200722
  Receipt Date: 20200722
  Transmission Date: 20201103
  Serious: Yes (Hospitalization, Other)
  Sender: FDA-Public Use
  Company Number: NVSC2020AU203396

PATIENT
  Age: 63 Year
  Sex: Female
  Weight: 95 kg

DRUGS (2)
  1. PAZOPANIB [Suspect]
     Active Substance: PAZOPANIB
     Indication: UTERINE LEIOMYOSARCOMA
  2. PAZOPANIB [Suspect]
     Active Substance: PAZOPANIB
     Indication: LEIOMYOSARCOMA METASTATIC
     Dosage: 400 MG, QD
     Route: 048
     Dates: start: 20200507, end: 20200521

REACTIONS (18)
  - Logorrhoea [Recovered/Resolved]
  - Liver function test abnormal [Recovered/Resolved]
  - White matter lesion [Unknown]
  - Encephalitis [Recovered/Resolved]
  - Tangentiality [Unknown]
  - Protein total increased [Unknown]
  - Confusional state [Unknown]
  - Abnormal behaviour [Unknown]
  - Malignant neoplasm progression [Unknown]
  - Thinking abnormal [Unknown]
  - Mania [Recovered/Resolved]
  - Posterior reversible encephalopathy syndrome [Unknown]
  - Leiomyosarcoma metastatic [Unknown]
  - Delirium [Recovered/Resolved]
  - CSF test abnormal [Unknown]
  - Memory impairment [Recovered/Resolved]
  - Pressure of speech [Unknown]
  - Sinus disorder [Unknown]

NARRATIVE: CASE EVENT DATE: 20200521
